FAERS Safety Report 11382888 (Version 1)
Quarter: 2015Q3

REPORT INFORMATION
  Report Type: Spontaneous
  Country: US (occurrence: US)
  Receive Date: 20150814
  Receipt Date: 20150814
  Transmission Date: 20151125
  Serious: Yes (Other)
  Sender: FDA-Public Use
  Company Number: US-BAYER-2015-396211

PATIENT

DRUGS (1)
  1. STIVARGA [Suspect]
     Active Substance: REGORAFENIB
     Dosage: 40 MG, QID
     Route: 048

REACTIONS (3)
  - Hepatotoxicity [None]
  - Hepatic enzyme increased [None]
  - Drug administration error [None]
